FAERS Safety Report 12654232 (Version 2)
Quarter: 2016Q4

REPORT INFORMATION
  Report Type: Report from Study
  Country: US (occurrence: US)
  Receive Date: 20160816
  Receipt Date: 20161013
  Transmission Date: 20170207
  Serious: Yes (Hospitalization, Other)
  Sender: FDA-Public Use
  Company Number: US-ROCHE-1813880

PATIENT
  Sex: Female
  Weight: 47.67 kg

DRUGS (3)
  1. KADCYLA [Suspect]
     Active Substance: ADO-TRASTUZUMAB EMTANSINE
     Indication: HER-2 POSITIVE BREAST CANCER
     Dosage: HAD 10 INFUSIONS
     Route: 065
  2. HERCEPTIN [Suspect]
     Active Substance: TRASTUZUMAB
     Indication: HER-2 POSITIVE BREAST CANCER
     Route: 065
  3. ANASTROZOLE. [Concomitant]
     Active Substance: ANASTROZOLE
     Indication: BREAST CANCER
     Route: 065
     Dates: start: 201609

REACTIONS (6)
  - Urinary tract infection [Recovered/Resolved]
  - Device related infection [Unknown]
  - Onycholysis [Not Recovered/Not Resolved]
  - Pneumonia [Unknown]
  - Onychomalacia [Unknown]
  - Platelet count decreased [Unknown]
